FAERS Safety Report 9138922 (Version 2)
Quarter: 2013Q2

REPORT INFORMATION
  Report Type: Spontaneous
  Country: US (occurrence: US)
  Receive Date: 20130305
  Receipt Date: 20130408
  Transmission Date: 20140414
  Serious: Yes (Other)
  Sender: FDA-Public Use
  Company Number: US-PFIZER INC-2013075065

PATIENT
  Age: 73 Year
  Sex: Male
  Weight: 94.33 kg

DRUGS (6)
  1. CELEBREX [Suspect]
     Indication: CERVICAL SPINAL STENOSIS
     Dosage: 200 MG, 1X/DAY
     Dates: start: 20130226, end: 20130302
  2. ATENOLOL [Concomitant]
     Indication: HYPERTENSION
     Dosage: 100 MG, 2X/DAY
  3. HYDRALAZINE [Concomitant]
     Indication: HYPERTENSION
     Dosage: 25 MG, 4X/DAY
  4. LASIX [Concomitant]
     Indication: HYPERTENSION
     Dosage: 40 MG, 2X/DAY
  5. METFORMIN [Concomitant]
     Indication: TYPE 2 DIABETES MELLITUS
     Dosage: 2 G, 1X/DAY
  6. JANUVIA [Concomitant]
     Indication: TYPE 2 DIABETES MELLITUS
     Dosage: 100 MG, 1X/DAY

REACTIONS (3)
  - Drug label confusion [Unknown]
  - Haematemesis [Unknown]
  - Feeling abnormal [Recovered/Resolved]
